FAERS Safety Report 23565830 (Version 1)
Quarter: 2024Q1

REPORT INFORMATION
  Report Type: Spontaneous
  Country: US (occurrence: US)
  Receive Date: 20240226
  Receipt Date: 20240226
  Transmission Date: 20240410
  Serious: No
  Sender: FDA-Public Use
  Company Number: US-BAYER-2024A027600

PATIENT
  Age: 56 Year
  Sex: Female

DRUGS (3)
  1. BETASERON [Suspect]
     Active Substance: INTERFERON BETA-1B
     Indication: Multiple sclerosis
     Dosage: UNK UNK, QOD
     Dates: start: 2006
  2. AVONEX [Concomitant]
     Active Substance: INTERFERON BETA-1A
     Dosage: 1 X PER WEEK
  3. REBIF [Concomitant]
     Active Substance: INTERFERON BETA-1A
     Dosage: 3X PER WEEK

REACTIONS (7)
  - Fall [None]
  - Fatigue [None]
  - Balance disorder [None]
  - Hypoaesthesia [None]
  - Paraesthesia [None]
  - Memory impairment [None]
  - Disturbance in attention [None]
